FAERS Safety Report 5144795-0 (Version None)
Quarter: 2006Q4

REPORT INFORMATION
  Report Type: 
  Country: None (occurrence: None)
  Receive Date: 20061102
  Receipt Date: 20061102
  Transmission Date: 20070319
  Serious: Yes (Life-Threatening, Disabling, Other)
  Sender: FDA-Public Use
  Company Number: None

PATIENT
  Age: 48 Year
  Sex: Female
  Weight: 92.9874 kg

DRUGS (3)
  1. FENTANYL TRANSDERMAL SYSTEM [Suspect]
     Indication: ARTHRALGIA
     Dosage: APPLY 1 PATCH EVERY 72 HOURS TRANSDERMAL
     Route: 062
     Dates: start: 20060301, end: 20061102
  2. FENTANYL TRANSDERMAL SYSTEM [Suspect]
     Indication: BACK PAIN
     Dosage: APPLY 1 PATCH EVERY 72 HOURS TRANSDERMAL
     Route: 062
     Dates: start: 20060301, end: 20061102
  3. FENTANYL TRANSDERMAL SYSTEM [Suspect]
     Indication: ARTHRALGIA
     Dosage: APPLY 1 PATCH EVERY 72 HOURS TRANSDERMAL
     Route: 062
     Dates: start: 20061005, end: 20061008

REACTIONS (12)
  - BLISTER [None]
  - CHILLS [None]
  - DISCOMFORT [None]
  - DRUG WITHDRAWAL SYNDROME [None]
  - FEELING ABNORMAL [None]
  - HOT FLUSH [None]
  - HYPERHIDROSIS [None]
  - NERVOUSNESS [None]
  - PAIN [None]
  - PHARMACEUTICAL PRODUCT COMPLAINT [None]
  - PRURITUS [None]
  - SCAR [None]
